FAERS Safety Report 7712582-2 (Version None)
Quarter: 2011Q3

REPORT INFORMATION
  Report Type: 
  Country: None (occurrence: None)
  Receive Date: 20110826
  Receipt Date: 20110824
  Transmission Date: 20111222
  Serious: Yes (Death, Hospitalization)
  Sender: FDA-Public Use
  Company Number: JP-B.I. PHARMACEUTICALS,INC./RIDGEFIELD-2011-BP-18855NB

PATIENT
  Sex: Male
  Weight: 66.7 kg

DRUGS (7)
  1. LANSOPRAZOLE [Concomitant]
     Indication: GASTROOESOPHAGEAL REFLUX DISEASE
     Dosage: 15 MG
     Route: 048
     Dates: start: 20100206
  2. PRADAXA [Suspect]
     Indication: ATRIAL FIBRILLATION
     Dosage: 220 MG
     Route: 048
     Dates: start: 20110725, end: 20110729
  3. NITREZIC [Concomitant]
     Indication: HYPERTENSION
     Route: 065
     Dates: start: 20070901
  4. ASPIRIN [Suspect]
     Indication: CEREBROVASCULAR ACCIDENT PROPHYLAXIS
     Dosage: 100 MG
     Route: 048
     Dates: start: 20090420, end: 20110729
  5. LENDORMIN D [Concomitant]
     Indication: INSOMNIA
     Dosage: 0.25 MG
     Route: 048
     Dates: start: 20090710
  6. KETOBUN [Concomitant]
     Indication: HYPERURICAEMIA
     Dosage: 100 MG
     Route: 048
     Dates: start: 20100206
  7. BIOFERMIN [Concomitant]
     Indication: DIARRHOEA
     Dosage: 3 G
     Route: 048
     Dates: start: 20110304

REACTIONS (7)
  - HAEMORRHAGE [None]
  - GINGIVAL BLEEDING [None]
  - SHOCK HAEMORRHAGIC [None]
  - HAEMORRHAGIC DIATHESIS [None]
  - FALL [None]
  - RETROPERITONEAL HAEMORRHAGE [None]
  - HAEMOGLOBIN DECREASED [None]
